FAERS Safety Report 9809296 (Version 1)
Quarter: 2014Q1

REPORT INFORMATION
  Report Type: Spontaneous
  Country: FR (occurrence: FR)
  Receive Date: 20140110
  Receipt Date: 20140110
  Transmission Date: 20141002
  Serious: Yes (Life-Threatening)
  Sender: FDA-Public Use
  Company Number: FR-ASTRAZENECA-2014SE00921

PATIENT
  Age: 28299 Day
  Sex: Female

DRUGS (4)
  1. XYLOCAINE [Suspect]
     Route: 013
     Dates: start: 20131211, end: 20131211
  2. OMNIPAQUE [Suspect]
     Route: 042
     Dates: start: 20131211, end: 20131211
  3. SODIC HEPARINE CHOAY [Suspect]
     Route: 013
     Dates: start: 20131211, end: 20131211
  4. RISORDAN [Suspect]
     Route: 013
     Dates: start: 20131211, end: 20131211

REACTIONS (1)
  - Asthmatic crisis [Recovered/Resolved]
